FAERS Safety Report 7938578-3 (Version None)
Quarter: 2011Q4

REPORT INFORMATION
  Report Type: 
  Country: None (occurrence: None)
  Receive Date: 20111123
  Receipt Date: 20111114
  Transmission Date: 20120403
  Serious: Yes (Hospitalization)
  Sender: FDA-Public Use
  Company Number: US-ASTRAZENECA-2011SE63612

PATIENT
  Sex: Female
  Weight: 86.2 kg

DRUGS (1)
  1. FASLODEX [Suspect]
     Indication: INFLAMMATORY CARCINOMA OF BREAST STAGE IV
     Route: 030
     Dates: start: 20110201

REACTIONS (5)
  - VIRAL INFECTION [None]
  - BLOOD ALKALINE PHOSPHATASE INCREASED [None]
  - HEPATIC ENZYME INCREASED [None]
  - RASH GENERALISED [None]
  - DECREASED APPETITE [None]
